FAERS Safety Report 13610320 (Version 2)
Quarter: 2017Q2

REPORT INFORMATION
  Report Type: Spontaneous
  Country: DE (occurrence: DE)
  Receive Date: 20170605
  Receipt Date: 20170608
  Transmission Date: 20170830
  Serious: Yes (Other)
  Sender: FDA-Public Use
  Company Number: DE-ACCORD-052350

PATIENT
  Age: 27 Year
  Sex: Male

DRUGS (6)
  1. PANTOPRAZOLE [Concomitant]
     Active Substance: PANTOPRAZOLE
     Dosage: 14-JUL-2016 TO 5-AUG-2016:20 MG DAILY?06-AUG-2016 TO 09-SEP-2016:40 MG DAILY
     Route: 048
     Dates: start: 20160714, end: 20160909
  2. METHYLPHENIDATE JANSSEN-CILAG [Suspect]
     Active Substance: METHYLPHENIDATE
     Indication: PRODUCT USED FOR UNKNOWN INDICATION
     Dosage: 01-SEP-2016 TO 07-SEP-2016 AT 10 MG?08-SEP-2016 TO 09-SEP-2016 AT 20 MG
     Route: 048
     Dates: start: 20160901, end: 20160909
  3. PREGABALIN. [Suspect]
     Active Substance: PREGABALIN
     Indication: PRODUCT USED FOR UNKNOWN INDICATION
     Dosage: 08-AUG-2016 TO 16-AUG-2016:25 MG?17-AUG- 2016 TO 22-AUG-2016:75 MG
     Route: 048
     Dates: start: 20160808, end: 20160829
  4. QUETIAPINE. [Suspect]
     Active Substance: QUETIAPINE
     Indication: PRODUCT USED FOR UNKNOWN INDICATION
     Dosage: 09-MAR-2016 TO 24-JUL-2016:50 MG?28-MAR-2016 TO 16-AUG-2016:150 MG?17-AUG-2016 TO 29-AUG-2016:125
     Route: 048
     Dates: start: 20160830, end: 20160909
  5. SERTRALINE [Suspect]
     Active Substance: SERTRALINE HYDROCHLORIDE
     Indication: PRODUCT USED FOR UNKNOWN INDICATION
     Dosage: 09-MAR-2016 TO 10-JUL-2016 AT 100 MG DAILY?11-JUL-2016 TO 21-JUL-2016 AT 150 MG DAILY
     Route: 048
     Dates: start: 20160917, end: 20161003
  6. DICLOFENAC [Concomitant]
     Active Substance: DICLOFENAC
     Route: 048
     Dates: start: 20160714, end: 20160810

REACTIONS (3)
  - Myalgia [Recovering/Resolving]
  - Muscular weakness [Recovering/Resolving]
  - Blood creatine phosphokinase increased [Recovering/Resolving]

NARRATIVE: CASE EVENT DATE: 20160809
